FAERS Safety Report 9188729 (Version 1)
Quarter: 2013Q1

REPORT INFORMATION
  Report Type: Spontaneous
  Country: IN (occurrence: IN)
  Receive Date: 20130325
  Receipt Date: 20130325
  Transmission Date: 20140127
  Serious: Yes (Life-Threatening)
  Sender: FDA-Public Use
  Company Number: IN-ASTRAZENECA-2013SE18912

PATIENT
  Age: 0 Day
  Sex: Male

DRUGS (4)
  1. BRILINTA [Suspect]
     Indication: ACUTE CORONARY SYNDROME
     Route: 048
     Dates: start: 20130319, end: 20130319
  2. BRILINTA [Suspect]
     Indication: ANGIOPLASTY
     Route: 048
     Dates: start: 20130319, end: 20130319
  3. ECOSPRIN [Concomitant]
     Indication: ACUTE CORONARY SYNDROME
     Route: 048
     Dates: start: 20130319
  4. ECOSPRIN [Concomitant]
     Indication: ANGIOPLASTY
     Route: 048
     Dates: start: 20130319

REACTIONS (1)
  - Thrombosis in device [Recovering/Resolving]
